FAERS Safety Report 7812494-X (Version None)
Quarter: 2011Q4

REPORT INFORMATION
  Report Type: 
  Country: None (occurrence: None)
  Receive Date: 20111013
  Receipt Date: 20111004
  Transmission Date: 20120403
  Serious: Yes (Hospitalization)
  Sender: FDA-Public Use
  Company Number: US-ASTRAZENECA-2011SE59376

PATIENT
  Age: 58 Year
  Sex: Female
  Weight: 84.4 kg

DRUGS (8)
  1. ZOLOFT [Concomitant]
     Indication: DEPRESSION
  2. PLAVIX [Concomitant]
     Indication: ANTICOAGULANT THERAPY
  3. XANAX [Concomitant]
     Indication: ANXIETY
  4. HCT WATERPILL [Concomitant]
     Indication: HYPERTENSION
  5. CRESTOR [Suspect]
     Indication: BLOOD CHOLESTEROL ABNORMAL
     Route: 048
  6. SEROQUEL [Suspect]
     Indication: DEPRESSION
     Route: 048
  7. TOPROL-XL [Suspect]
     Indication: HYPERTENSION
     Route: 048
  8. ASPIRIN [Concomitant]
     Indication: ANTICOAGULANT THERAPY
     Dosage: 325

REACTIONS (3)
  - HYPOAESTHESIA [None]
  - MYOCARDIAL INFARCTION [None]
  - HEADACHE [None]
